FAERS Safety Report 22634977 (Version 1)
Quarter: 2023Q2

REPORT INFORMATION
  Report Type: Spontaneous
  Country: US (occurrence: US)
  Receive Date: 20230623
  Receipt Date: 20230623
  Transmission Date: 20230721
  Serious: Yes (Hospitalization, Disabling, Other)
  Sender: FDA-Public Use
  Company Number: US-PFM-2023-03487

PATIENT
  Age: 0 Year
  Sex: Male
  Weight: 5.18 kg

DRUGS (1)
  1. HEMANGEOL [Suspect]
     Active Substance: PROPRANOLOL HYDROCHLORIDE
     Indication: Infantile haemangioma
     Dosage: 0.3 ML, BID (2/DAY)
     Route: 048
     Dates: start: 20230504

REACTIONS (3)
  - Respiratory rate decreased [Unknown]
  - Pallor [Unknown]
  - Hypersensitivity [Unknown]

NARRATIVE: CASE EVENT DATE: 20230504
